FAERS Safety Report 18072268 (Version 2)
Quarter: 2020Q3

REPORT INFORMATION
  Report Type: Spontaneous
  Country: FR (occurrence: FR)
  Receive Date: 20200727
  Receipt Date: 20200917
  Transmission Date: 20201103
  Serious: Yes (Hospitalization)
  Sender: FDA-Public Use
  Company Number: FR-ACCORD-192772

PATIENT
  Age: 62 Year
  Sex: Male

DRUGS (3)
  1. SIMVASTATIN. [Suspect]
     Active Substance: SIMVASTATIN
     Indication: HYPERCHOLESTEROLAEMIA
     Dosage: UNSPECIFIED
     Route: 048
  2. GENTAMICIN. [Suspect]
     Active Substance: GENTAMICIN
     Indication: BACTERAEMIA
     Dosage: THERAPY LAST ADMINISTRATION DATE?12?JUL?2020
     Route: 042
     Dates: start: 20200629
  3. AMOXICILLIN. [Suspect]
     Active Substance: AMOXICILLIN
     Indication: BACTERAEMIA
     Dosage: THERAPY LAST ADMINISTRATION DATE?08?SEP?2020
     Route: 042
     Dates: start: 20200629

REACTIONS (2)
  - Hepatocellular injury [Recovered/Resolved]
  - Hypertransaminasaemia [Recovered/Resolved]

NARRATIVE: CASE EVENT DATE: 20200630
